FAERS Safety Report 6341368-9 (Version None)
Quarter: 2009Q3

REPORT INFORMATION
  Report Type: 
  Country: None (occurrence: None)
  Receive Date: 20090904
  Receipt Date: 20090828
  Transmission Date: 20100115
  Serious: Yes (Disabling, Congenital Anomaly)
  Sender: FDA-Public Use
  Company Number: DE-VALEANT-2009VX001601

PATIENT

DRUGS (4)
  1. DIHYDROERGOTAMINE MESYLATE [Suspect]
     Route: 064
     Dates: start: 19900504, end: 19900504
  2. DEXTRAN INJ [Suspect]
     Route: 064
     Dates: start: 19900504, end: 19900504
  3. PROSTAGLANDINS [Suspect]
     Indication: PROLONGED PREGNANCY
     Route: 064
     Dates: start: 19900504, end: 19900504
  4. CONTRACTION-INDUCING DRUGS [Suspect]
     Indication: PROLONGED PREGNANCY
     Route: 064
     Dates: start: 19900504, end: 19900504

REACTIONS (9)
  - ACIDOSIS [None]
  - APGAR SCORE LOW [None]
  - CAESAREAN SECTION [None]
  - DEVELOPMENTAL DELAY [None]
  - HYPOXIC ENCEPHALOPATHY [None]
  - MATERNAL DRUGS AFFECTING FOETUS [None]
  - MENTAL RETARDATION [None]
  - NEONATAL DISORDER [None]
  - POSTMATURE BABY [None]
